FAERS Safety Report 5010787-5 (Version None)
Quarter: 2006Q2

REPORT INFORMATION
  Report Type: 
  Country: None (occurrence: None)
  Receive Date: 20060524
  Receipt Date: 20060524
  Transmission Date: 20061013
  Serious: Yes (Other)
  Sender: FDA-Public Use
  Company Number: None

PATIENT
  Age: 59 Year
  Sex: Female

DRUGS (3)
  1. COPAXONE [Suspect]
     Indication: MULTIPLE SCLEROSIS
     Dosage: 20 MCG UNDER THE SKIN DAILY
     Route: 059
  2. NEURONTIN [Concomitant]
  3. AMBIEN [Concomitant]

REACTIONS (2)
  - PRURITUS [None]
  - URTICARIA [None]
